FAERS Safety Report 15013043 (Version 2)
Quarter: 2018Q2

REPORT INFORMATION
  Report Type: Report from Study
  Country: JP (occurrence: JP)
  Receive Date: 20180614
  Receipt Date: 20180627
  Transmission Date: 20180711
  Serious: Yes (Hospitalization, Other)
  Sender: FDA-Public Use
  Company Number: JP-MYLANLABS-2018M1039527

PATIENT
  Age: 3 Year
  Sex: Female
  Weight: 12 kg

DRUGS (19)
  1. ASPARA K [Concomitant]
     Active Substance: POTASSIUM ASPARTATE
     Dosage: 3 G, UNK
     Route: 048
     Dates: start: 20180307, end: 20180409
  2. CARBOCYSTEINE [Concomitant]
     Active Substance: CARBOCYSTEINE
     Indication: PRODUCT USED FOR UNKNOWN INDICATION
     Dosage: 0.7 G, UNK
     Route: 048
     Dates: start: 20180307, end: 20180314
  3. TULOBUTEROL [Concomitant]
     Active Substance: TULOBUTEROL
     Indication: PRODUCT USED FOR UNKNOWN INDICATION
     Dosage: 0.5 G, UNK
     Route: 048
     Dates: start: 20180307, end: 20180314
  4. NESP [Concomitant]
     Active Substance: DARBEPOETIN ALFA
     Indication: PRODUCT USED FOR UNKNOWN INDICATION
     Dosage: 5 ?G, UNK
     Route: 042
     Dates: start: 20170607, end: 20170927
  5. NICYSTAGON CAP. 150MG [Suspect]
     Active Substance: CYSTEAMINE
     Indication: PRODUCT USED FOR UNKNOWN INDICATION
     Dosage: 150 MG, QID
     Route: 065
     Dates: start: 20170628
  6. PHOSRIBBON [Concomitant]
     Dosage: 350 MG, UNK
     Route: 048
     Dates: start: 20161207, end: 20171205
  7. ALFAROL [Concomitant]
     Active Substance: ALFACALCIDOL
     Indication: PRODUCT USED FOR UNKNOWN INDICATION
     Dosage: 0.8 ?G, UNK
     Route: 048
     Dates: start: 20160406
  8. ASPARA K [Concomitant]
     Active Substance: POTASSIUM ASPARTATE
     Indication: PRODUCT USED FOR UNKNOWN INDICATION
     Dosage: 2.4 G, UNK
     Route: 048
     Dates: start: 20171101, end: 20171205
  9. ASPARA K [Concomitant]
     Active Substance: POTASSIUM ASPARTATE
     Dosage: 2.6 G, UNK
     Route: 048
     Dates: start: 20171206, end: 20180116
  10. ASPARA K [Concomitant]
     Active Substance: POTASSIUM ASPARTATE
     Dosage: 3.2 G, UNK
     Route: 048
     Dates: start: 20180410, end: 20180515
  11. BIO-THREE [Concomitant]
     Active Substance: HERBALS
     Indication: PRODUCT USED FOR UNKNOWN INDICATION
     Dosage: 0.5 G, UNK
     Route: 048
     Dates: start: 20180110, end: 20180117
  12. CARBOCYSTEINE [Concomitant]
     Active Substance: CARBOCYSTEINE
     Dosage: ??
     Dates: start: 20180307, end: 20180409
  13. BICARBONATE SODIUM [Concomitant]
     Active Substance: SODIUM BICARBONATE
     Indication: PRODUCT USED FOR UNKNOWN INDICATION
     Dosage: 3.5 G, UNK
     Route: 048
     Dates: start: 20160511
  14. ASPARA K [Concomitant]
     Active Substance: POTASSIUM ASPARTATE
     Dosage: 4 G, UNK
     Route: 048
     Dates: start: 20180516
  15. PHOSRIBBON [Concomitant]
     Indication: PRODUCT USED FOR UNKNOWN INDICATION
     Dosage: 400 MG, UNK
     Route: 048
     Dates: start: 20161109, end: 20161206
  16. URINMET [Concomitant]
     Active Substance: POTASSIUM CITRATE\SODIUM CITRATE
     Indication: PRODUCT USED FOR UNKNOWN INDICATION
     Dosage: 3.5 G, UNK
     Route: 048
     Dates: start: 20170412
  17. PHOSRIBBON [Concomitant]
     Dosage: 400 MG, UNK
     Route: 048
     Dates: start: 20171206
  18. ASPARA K [Concomitant]
     Active Substance: POTASSIUM ASPARTATE
     Dosage: 2.8 G, UNK
     Route: 048
     Dates: start: 20170117, end: 20180306
  19. L CARTIN [Concomitant]
     Active Substance: LEVOCARNITINE HYDROCHLORIDE
     Indication: PRODUCT USED FOR UNKNOWN INDICATION
     Dosage: 3 ML, UNK
     Route: 048
     Dates: start: 20160302

REACTIONS (2)
  - Enteritis infectious [Recovered/Resolved]
  - Hypokalaemia [Recovered/Resolved]

NARRATIVE: CASE EVENT DATE: 20180108
